FAERS Safety Report 12886935 (Version 5)
Quarter: 2017Q3

REPORT INFORMATION
  Report Type: Report from Study
  Country: CA (occurrence: CA)
  Receive Date: 20161026
  Receipt Date: 20170921
  Transmission Date: 20171127
  Serious: Yes (Other)
  Sender: FDA-Public Use
  Company Number: CA-INCYTE CORPORATION-2016IN000454

PATIENT

DRUGS (3)
  1. JAKAVI [Suspect]
     Active Substance: RUXOLITINIB
     Indication: POLYCYTHAEMIA VERA
     Dosage: 15 MG, BID
     Route: 048
     Dates: start: 20160115
  2. ASA [Concomitant]
     Active Substance: ASPIRIN
     Indication: PRODUCT USED FOR UNKNOWN INDICATION
     Dosage: 81 MG, UNK
     Route: 065
  3. JAKAVI [Suspect]
     Active Substance: RUXOLITINIB
     Dosage: 20 MG, BID
     Route: 048

REACTIONS (20)
  - Gastric disorder [Unknown]
  - Cough [Unknown]
  - Gastric ulcer [Unknown]
  - Vomiting [Unknown]
  - Muscle strain [Unknown]
  - Bone pain [Unknown]
  - Flatulence [Unknown]
  - Back pain [Unknown]
  - Pruritus [Not Recovered/Not Resolved]
  - Urinary tract infection [Recovered/Resolved]
  - Influenza [Unknown]
  - Glomerular filtration rate increased [Unknown]
  - Tooth disorder [Unknown]
  - Fatigue [Unknown]
  - Ligament pain [Unknown]
  - Tendon pain [Unknown]
  - Weight increased [Unknown]
  - Constipation [Unknown]
  - Tooth infection [Unknown]
  - Cystitis [Unknown]
